FAERS Safety Report 4448247-2 (Version None)
Quarter: 2004Q3

REPORT INFORMATION
  Report Type: 
  Country: None (occurrence: None)
  Receive Date: 20040910
  Receipt Date: 20040820
  Transmission Date: 20050211
  Serious: Yes (Death, Life-Threatening)
  Sender: FDA-Public Use
  Company Number: 238779

PATIENT
  Age: 55 Year
  Sex: Male
  Weight: 62 kg

DRUGS (4)
  1. NOVOSEVEN [Suspect]
     Indication: HAEMORRHAGE
     Dosage: 120 KIU, INTRAVENOUS  : 360 KIU, INTRAVENOUS
     Route: 042
     Dates: start: 20031007, end: 20031007
  2. NOVOSEVEN [Suspect]
     Indication: HAEMORRHAGE
     Dosage: 120 KIU, INTRAVENOUS  : 360 KIU, INTRAVENOUS
     Route: 042
     Dates: start: 20031007, end: 20031007
  3. ANVITOFF (TRANEXAMIC ACID) [Concomitant]
  4. HAEMOCOMPLETTAN HS (FACTOR I (FIBRINOGEN)) [Concomitant]

REACTIONS (5)
  - CARDIAC ARREST [None]
  - CATHETER RELATED COMPLICATION [None]
  - PULMONARY EMBOLISM [None]
  - PULMONARY OEDEMA [None]
  - SHOCK [None]
